FAERS Safety Report 5572093-X (Version None)
Quarter: 2007Q4

REPORT INFORMATION
  Report Type: 
  Country: None (occurrence: None)
  Receive Date: 20071219
  Receipt Date: 20071211
  Transmission Date: 20080405
  Serious: Yes (Death, Other)
  Sender: FDA-Public Use
  Company Number: 2007US002870

PATIENT
  Age: 2 Year
  Sex: Male

DRUGS (2)
  1. PROGRAF [Suspect]
     Indication: LIVER TRANSPLANT
     Dosage: 0.5 MG, UID/QD, IV NOS; 0.5 MG, UID/QD, IV NOS
     Route: 042
     Dates: start: 20071115, end: 20071116
  2. PROGRAF [Suspect]
     Indication: LIVER TRANSPLANT
     Dosage: 0.5 MG, UID/QD, IV NOS; 0.5 MG, UID/QD, IV NOS
     Route: 042
     Dates: start: 20071119, end: 20071202

REACTIONS (6)
  - DRUG LEVEL INCREASED [None]
  - IMMUNE SYSTEM DISORDER [None]
  - NEPHROPATHY TOXIC [None]
  - SEPSIS [None]
  - SHORT-BOWEL SYNDROME [None]
  - TRANSPLANT REJECTION [None]
